FAERS Safety Report 5819070-9 (Version None)
Quarter: 2008Q3

REPORT INFORMATION
  Report Type: 
  Country: None (occurrence: None)
  Receive Date: 20080721
  Receipt Date: 20080721
  Transmission Date: 20090109
  Serious: Yes (Disabling, Other)
  Sender: FDA-Public Use
  Company Number: None

PATIENT
  Age: 51 Year
  Sex: Female
  Weight: 97.5234 kg

DRUGS (1)
  1. TYSABRI [Suspect]
     Indication: PROGRESSIVE MULTIPLE SCLEROSIS
     Dates: start: 20080609, end: 20080609

REACTIONS (1)
  - THROMBOSIS [None]
